FAERS Safety Report 21145980 (Version 1)
Quarter: 2022Q3

REPORT INFORMATION
  Report Type: Spontaneous
  Country: IT (occurrence: IT)
  Receive Date: 20220729
  Receipt Date: 20220729
  Transmission Date: 20221027
  Serious: Yes (Hospitalization, Other)
  Sender: FDA-Public Use
  Company Number: IT-SUN PHARMACEUTICAL INDUSTRIES LTD-2022RR-346633

PATIENT
  Age: 64 Year
  Sex: Male

DRUGS (7)
  1. CEFTRIAXONE [Suspect]
     Active Substance: CEFTRIAXONE
     Indication: COVID-19
     Dosage: 2 GRAM, DAILY
     Route: 042
  2. NOREPINEPHRINE [Suspect]
     Active Substance: NOREPINEPHRINE
     Indication: Hypotonia
     Dosage: (8MG/50ML; 10ML/H), DAILY
     Route: 065
  3. HYDROXYCHLOROQUINE [Suspect]
     Active Substance: HYDROXYCHLOROQUINE
     Indication: COVID-19
     Dosage: 200 MILLIGRAM, DAILY
     Route: 065
  4. ROCURONIUM [Suspect]
     Active Substance: ROCURONIUM BROMIDE
     Indication: Feeling of relaxation
     Dosage: (10MG/ML; 5ML/H), UNK
     Route: 065
  5. Enoxeparin sodium [Concomitant]
     Indication: COVID-19
     Dosage: 40 MILLIGRAM, DAILY (4000 IU)
     Route: 065
  6. REMIFENTANIL [Concomitant]
     Active Substance: REMIFENTANIL
     Indication: Feeling of relaxation
     Dosage: 5MG/50ML; 4ML/H, UNK
     Route: 042
  7. PROPOFOL [Concomitant]
     Active Substance: PROPOFOL
     Indication: Feeling of relaxation
     Dosage: 2% (20MG/ML; 12ML/H), UNK
     Route: 042

REACTIONS (2)
  - Angle closure glaucoma [Unknown]
  - Off label use [Unknown]
